FAERS Safety Report 4311823-1 (Version None)
Quarter: 2004Q1

REPORT INFORMATION
  Report Type: 
  Country: None (occurrence: None)
  Receive Date: 20040304
  Receipt Date: 20040223
  Transmission Date: 20041129
  Serious: No
  Sender: FDA-Public Use
  Company Number: WAES 0402COL00033M

PATIENT
  Sex: Female

DRUGS (1)
  1. PROSCAR [Suspect]
     Indication: ALOPECIA
     Route: 048

REACTIONS (4)
  - CONGENITAL ANOMALY [None]
  - DRUG EXPOSURE DURING PREGNANCY [None]
  - HYPOSPADIAS [None]
  - TRANSMISSION OF DRUG VIA SEMEN [None]
